FAERS Safety Report 19674925 (Version 1)
Quarter: 2021Q3

REPORT INFORMATION
  Report Type: Spontaneous
  Country: US (occurrence: US)
  Receive Date: 20210809
  Receipt Date: 20210809
  Transmission Date: 20211014
  Serious: No
  Sender: FDA-Public Use
  Company Number: None

PATIENT
  Sex: Male

DRUGS (1)
  1. TALTZ [Suspect]
     Active Substance: IXEKIZUMAB
     Indication: PSORIASIS
     Dosage: ?          OTHER FREQUENCY:EVERY TWO WEEKS;?
     Dates: start: 20200227

REACTIONS (5)
  - Haemorrhage [None]
  - Pruritus [None]
  - Urticaria [None]
  - Drug hypersensitivity [None]
  - Scratch [None]
